FAERS Safety Report 14188182 (Version 3)
Quarter: 2018Q1

REPORT INFORMATION
  Report Type: Report from Study
  Country: US (occurrence: US)
  Receive Date: 20171114
  Receipt Date: 20180109
  Transmission Date: 20180508
  Serious: Yes (Hospitalization, Other)
  Sender: FDA-Public Use
  Company Number: PHEH2017US036144

PATIENT
  Age: 53 Year
  Sex: Female

DRUGS (1)
  1. ILARIS [Suspect]
     Active Substance: CANAKINUMAB
     Indication: PRODUCT USED FOR UNKNOWN INDICATION
     Route: 065

REACTIONS (8)
  - Seizure [Unknown]
  - Breath sounds abnormal [Unknown]
  - Blood glucose increased [Unknown]
  - Kidney infection [Unknown]
  - Musculoskeletal pain [Unknown]
  - Urinary retention [Unknown]
  - Ear pain [Unknown]
  - Headache [Unknown]

NARRATIVE: CASE EVENT DATE: 20171026
